FAERS Safety Report 4834765-1 (Version None)
Quarter: 2005Q4

REPORT INFORMATION
  Report Type: 
  Country: None (occurrence: None)
  Receive Date: 20051122
  Receipt Date: 20050929
  Transmission Date: 20060501
  Serious: No
  Sender: FDA-Public Use
  Company Number: US-BRISTOL-MYERS SQUIBB COMPANY-13126222

PATIENT
  Age: 91 Year
  Sex: Female
  Weight: 68 kg

DRUGS (7)
  1. PRAVACHOL [Suspect]
     Indication: HYPERLIPIDAEMIA
     Dates: end: 20050925
  2. LASIX [Concomitant]
  3. POTASSIUM [Concomitant]
  4. PROCARDIA [Concomitant]
  5. IMDUR [Concomitant]
  6. ASPIRIN [Concomitant]
  7. MIACALCIN [Concomitant]

REACTIONS (2)
  - FORMICATION [None]
  - SOMNOLENCE [None]
